FAERS Safety Report 4838285-X (Version None)
Quarter: 2005Q4

REPORT INFORMATION
  Report Type: 
  Country: None (occurrence: None)
  Receive Date: 20051128
  Receipt Date: 20050930
  Transmission Date: 20060501
  Serious: Yes (Hospitalization, Disabling)
  Sender: FDA-Public Use
  Company Number: CZ-MERCK-0511CZE00005

PATIENT
  Sex: Male

DRUGS (1)
  1. VIOXX [Suspect]
     Indication: PAIN
     Route: 048
     Dates: start: 20010314, end: 20030825

REACTIONS (2)
  - CEREBROVASCULAR ACCIDENT [None]
  - PEPTIC ULCER PERFORATION [None]
